FAERS Safety Report 8247441-2 (Version None)
Quarter: 2012Q1

REPORT INFORMATION
  Report Type: 
  Country: None (occurrence: None)
  Receive Date: 20120316
  Receipt Date: 20081014
  Transmission Date: 20120608
  Serious: Yes (Other)
  Sender: FDA-Public Use
  Company Number: PHEH2008US08818

PATIENT
  Age: 58 Year
  Sex: Female
  Weight: 67.1 kg

DRUGS (1)
  1. TEKTURNA [Suspect]
     Dosage: UNK
     Dates: start: 20081003, end: 20081003

REACTIONS (10)
  - DYSPHAGIA [None]
  - LIP SWELLING [None]
  - PHARYNGEAL OEDEMA [None]
  - SWELLING FACE [None]
  - SWOLLEN TONGUE [None]
  - DYSARTHRIA [None]
  - ANGIOEDEMA [None]
  - GLOSSITIS [None]
  - ODYNOPHAGIA [None]
  - PERIORBITAL OEDEMA [None]
